FAERS Safety Report 14633137 (Version 1)
Quarter: 2018Q1

REPORT INFORMATION
  Report Type: Spontaneous
  Country: CA (occurrence: CA)
  Receive Date: 20180313
  Receipt Date: 20180313
  Transmission Date: 20180509
  Serious: Yes (Death)
  Sender: FDA-Public Use
  Company Number: CA-ACTELION-A-NJ2018-168714

PATIENT
  Age: 2 Year
  Sex: Female

DRUGS (1)
  1. ZAVESCA [Suspect]
     Active Substance: MIGLUSTAT
     Indication: GAUCHER^S DISEASE TYPE I
     Dosage: 100 MG, UNK
     Route: 048
     Dates: end: 20180302

REACTIONS (1)
  - Death [Fatal]

NARRATIVE: CASE EVENT DATE: 20180302
